FAERS Safety Report 9707626 (Version 1)
Quarter: 2013Q4

REPORT INFORMATION
  Report Type: Spontaneous
  Country: US (occurrence: US)
  Receive Date: 20131125
  Receipt Date: 20131125
  Transmission Date: 20140711
  Serious: No
  Sender: FDA-Public Use
  Company Number: US-TEVA-376796USA

PATIENT
  Age: 37 Year
  Sex: Female
  Weight: 76.73 kg

DRUGS (2)
  1. PARAGARD 380A [Suspect]
     Indication: CONTRACEPTION
     Route: 015
     Dates: start: 20121003, end: 20121203
  2. PARAGARD 380A [Suspect]
     Route: 015
     Dates: start: 20121203

REACTIONS (2)
  - Device expulsion [Recovered/Resolved]
  - Uterine leiomyoma [Not Recovered/Not Resolved]
